FAERS Safety Report 7909469-9 (Version None)
Quarter: 2011Q4

REPORT INFORMATION
  Report Type: 
  Country: None (occurrence: None)
  Receive Date: 20111111
  Receipt Date: 20111104
  Transmission Date: 20120403
  Serious: Yes (Hospitalization)
  Sender: FDA-Public Use
  Company Number: US-AMGEN-STX252220

PATIENT
  Age: 59 Year
  Sex: Female

DRUGS (2)
  1. ENBREL [Suspect]
     Indication: RHEUMATOID ARTHRITIS
     Dosage: 25 MG, 2 TIMES/WK
     Route: 058
     Dates: start: 20000101
  2. ARAVA [Concomitant]
     Dosage: 20 MG, QD
     Route: 065
     Dates: start: 20060101

REACTIONS (17)
  - FALL [None]
  - INJECTION SITE PRURITUS [None]
  - FOOT DEFORMITY [None]
  - GAIT DISTURBANCE [None]
  - DEVICE DISLOCATION [None]
  - OPEN WOUND [None]
  - JOINT SWELLING [None]
  - DIVERTICULITIS [None]
  - HYPERKERATOSIS [None]
  - DRUG INEFFECTIVE [None]
  - INJECTION SITE PAIN [None]
  - JOINT DESTRUCTION [None]
  - RHEUMATOID NODULE [None]
  - INJECTION SITE SWELLING [None]
  - ARTHRALGIA [None]
  - HAND DEFORMITY [None]
  - INJECTION SITE REACTION [None]
